FAERS Safety Report 19858948 (Version 1)
Quarter: 2021Q3

REPORT INFORMATION
  Report Type: Spontaneous
  Country: US (occurrence: US)
  Receive Date: 20210920
  Receipt Date: 20210920
  Transmission Date: 20211014
  Serious: Yes (Death)
  Sender: FDA-Public Use
  Company Number: None

PATIENT
  Age: 68 Year
  Sex: Male

DRUGS (1)
  1. TADALAFIL 20MG CIPLA USA [Suspect]
     Active Substance: TADALAFIL
     Indication: PULMONARY ARTERIAL HYPERTENSION
     Route: 048
     Dates: start: 20140108, end: 20210907

REACTIONS (3)
  - Pulmonary hypertension [None]
  - Neoplasm malignant [None]
  - Renal failure [None]

NARRATIVE: CASE EVENT DATE: 20210907
